FAERS Safety Report 22114346 (Version 1)
Quarter: 2023Q1

REPORT INFORMATION
  Report Type: Spontaneous
  Country: US (occurrence: US)
  Receive Date: 20230320
  Receipt Date: 20230320
  Transmission Date: 20230417
  Serious: Yes (Death, Other)
  Sender: FDA-Public Use
  Company Number: US-AMGEN-USASP2023046288

PATIENT

DRUGS (7)
  1. CARFILZOMIB [Suspect]
     Active Substance: CARFILZOMIB
     Indication: Plasma cell myeloma refractory
     Dosage: UNK
     Route: 065
  2. BORTEZOMIB [Concomitant]
     Active Substance: BORTEZOMIB
     Indication: Plasma cell myeloma refractory
     Dosage: UNK
     Route: 065
  3. IXAZOMIB [Concomitant]
     Active Substance: IXAZOMIB
     Indication: Plasma cell myeloma refractory
     Dosage: UNK
     Route: 065
  4. LENALIDOMIDE [Concomitant]
     Active Substance: LENALIDOMIDE
     Indication: Plasma cell myeloma refractory
     Dosage: UNK
     Route: 065
  5. POMALIDOMIDE [Concomitant]
     Active Substance: POMALIDOMIDE
     Indication: Plasma cell myeloma refractory
     Dosage: UNK
     Route: 065
  6. THALIDOMIDE [Concomitant]
     Active Substance: THALIDOMIDE
     Indication: Plasma cell myeloma refractory
     Dosage: UNK
     Route: 065
  7. DARATUMUMAB [Concomitant]
     Active Substance: DARATUMUMAB
     Indication: Plasma cell myeloma refractory
     Dosage: UNK
     Route: 065

REACTIONS (5)
  - Death [Fatal]
  - Plasma cell myeloma [Unknown]
  - Therapy non-responder [Unknown]
  - Therapy partial responder [Unknown]
  - Toxicity to various agents [Unknown]
